FAERS Safety Report 11778243 (Version 9)
Quarter: 2016Q2

REPORT INFORMATION
  Report Type: Report from Study
  Country: US (occurrence: US)
  Receive Date: 20151125
  Receipt Date: 20160627
  Transmission Date: 20160815
  Serious: Yes (Other)
  Sender: FDA-Public Use
  Company Number: US-JNJFOC-20151122324

PATIENT
  Age: 82 Year
  Sex: Female

DRUGS (11)
  1. ENALAPRIL [Concomitant]
     Active Substance: ENALAPRIL
  2. AMIODARONE [Concomitant]
     Active Substance: AMIODARONE
  3. IMBRUVICA [Suspect]
     Active Substance: IBRUTINIB
     Indication: CHRONIC LYMPHOCYTIC LEUKAEMIA
     Route: 048
     Dates: start: 20150424
  4. AMLODIPINE [Concomitant]
     Active Substance: AMLODIPINE BESYLATE
  5. IMBRUVICA [Suspect]
     Active Substance: IBRUTINIB
     Indication: LYMPHOMA
     Route: 048
     Dates: start: 20150424
  6. PRADAXA [Suspect]
     Active Substance: DABIGATRAN ETEXILATE MESYLATE
     Indication: PRODUCT USED FOR UNKNOWN INDICATION
     Dosage: UNK
  7. HYDROCHLOROTHIAZIDE. [Concomitant]
     Active Substance: HYDROCHLOROTHIAZIDE
  8. BISOPROLOL [Concomitant]
     Active Substance: BISOPROLOL
  9. LASIX [Concomitant]
     Active Substance: FUROSEMIDE
     Dates: end: 2016
  10. KEFLEX [Concomitant]
     Active Substance: CEPHALEXIN
  11. ZOLOFT [Concomitant]
     Active Substance: SERTRALINE HYDROCHLORIDE

REACTIONS (10)
  - Off label use [Not Recovered/Not Resolved]
  - Haematotympanum [Unknown]
  - Product use issue [Not Recovered/Not Resolved]
  - Hypoacusis [Not Recovered/Not Resolved]
  - Dyspnoea [Unknown]
  - Deafness [Unknown]
  - Presyncope [Unknown]
  - Incorrect dose administered [Not Recovered/Not Resolved]
  - Atrial fibrillation [Unknown]
  - Ear haemorrhage [Unknown]

NARRATIVE: CASE EVENT DATE: 20150501
